FAERS Safety Report 22131584 (Version 1)
Quarter: 2023Q1

REPORT INFORMATION
  Report Type: Spontaneous
  Country: US (occurrence: US)
  Receive Date: 20230323
  Receipt Date: 20230323
  Transmission Date: 20230417
  Serious: No
  Sender: FDA-Public Use
  Company Number: US-ALLERGAN-2301976US

PATIENT
  Sex: Male

DRUGS (1)
  1. RECTIV [Suspect]
     Active Substance: NITROGLYCERIN
     Indication: Ill-defined disorder
     Dosage: 1 G, QD

REACTIONS (2)
  - Peripheral swelling [Recovering/Resolving]
  - Off label use [Unknown]
